FAERS Safety Report 8065489-8 (Version None)
Quarter: 2012Q1

REPORT INFORMATION
  Report Type: 
  Country: None (occurrence: None)
  Receive Date: 20120117
  Receipt Date: 20120104
  Transmission Date: 20120608
  Serious: Yes (Other)
  Sender: FDA-Public Use
  Company Number: 216401

PATIENT
  Age: 75 Year
  Sex: Male

DRUGS (1)
  1. INNOHEP [Suspect]
     Indication: KNEE ARTHROPLASTY
     Dosage: 4500 IU,SUBCUTANEOUS
     Route: 058
     Dates: start: 20111119, end: 20111206

REACTIONS (2)
  - DEEP VEIN THROMBOSIS [None]
  - HEPARIN-INDUCED THROMBOCYTOPENIA [None]
